FAERS Safety Report 8388281-3 (Version None)
Quarter: 2012Q2

REPORT INFORMATION
  Report Type: 
  Country: None (occurrence: None)
  Receive Date: 20120525
  Receipt Date: 20120510
  Transmission Date: 20120825
  Serious: Yes (Other)
  Sender: FDA-Public Use
  Company Number: CHPA2012US010923

PATIENT
  Age: 60 Year
  Sex: Male

DRUGS (1)
  1. EXCEDRIN EXTRA STRENGTH TABLETS [Suspect]
     Indication: PAIN MANAGEMENT
     Dosage: 4 DF, A DAY
     Route: 048

REACTIONS (4)
  - CEREBROVASCULAR ACCIDENT [None]
  - INCORRECT DRUG ADMINISTRATION DURATION [None]
  - THERAPEUTIC RESPONSE UNEXPECTED [None]
  - OFF LABEL USE [None]
